FAERS Safety Report 11738873 (Version 1)
Quarter: 2015Q4

REPORT INFORMATION
  Report Type: Spontaneous
  Country: NL (occurrence: NL)
  Receive Date: 20151113
  Receipt Date: 20151113
  Transmission Date: 20160304
  Serious: Yes (Hospitalization, Congenital Anomaly, Other)
  Sender: FDA-Public Use
  Company Number: NL-ASTRAZENECA-2015SF07719

PATIENT
  Age: 0 Day
  Sex: Male
  Weight: 2.7 kg

DRUGS (4)
  1. FOLIC ACID. [Concomitant]
     Active Substance: FOLIC ACID
     Route: 064
  2. QUETIAPINE [Suspect]
     Active Substance: QUETIAPINE
     Indication: DEPRESSION
     Route: 064
     Dates: start: 2013
  3. METHYLDOPA. [Concomitant]
     Active Substance: METHYLDOPA
     Indication: GESTATIONAL HYPERTENSION
     Route: 064
     Dates: start: 20151014
  4. CLOMIPRAMINE [Suspect]
     Active Substance: CLOMIPRAMINE
     Indication: DEPRESSION
     Route: 064
     Dates: start: 2013

REACTIONS (7)
  - Moaning [Unknown]
  - Neonatal hypoxia [Unknown]
  - Hypertonia neonatal [Recovering/Resolving]
  - Hypoglycaemia neonatal [Unknown]
  - Electrocardiogram ST segment depression [Recovering/Resolving]
  - Premature baby [Unknown]
  - Cyanosis neonatal [Recovering/Resolving]

NARRATIVE: CASE EVENT DATE: 20151015
